FAERS Safety Report 16325840 (Version 3)
Quarter: 2019Q3

REPORT INFORMATION
  Report Type: Spontaneous
  Country: PL (occurrence: PL)
  Receive Date: 20190517
  Receipt Date: 20190925
  Transmission Date: 20191004
  Serious: Yes (Hospitalization, Other)
  Sender: FDA-Public Use
  Company Number: PL-SA-2019SA070045

PATIENT
  Age: 67 Year
  Sex: Female

DRUGS (17)
  1. ZOLPIDEM TARTRATE. [Interacting]
     Active Substance: ZOLPIDEM TARTRATE
     Indication: SLEEP DISORDER
     Dosage: 40 MG (DOSE REDUCTION OF 1/4 EVERY 10-14 DAYS)
  2. ZOFENOPRIL [Concomitant]
     Active Substance: ZOFENOPRIL
     Indication: ACUTE MYOCARDIAL INFARCTION
     Dosage: 7.5 MG, QD
  3. MELATONIN [Interacting]
     Active Substance: MELATONIN
     Dosage: 5 MG, QD
  4. ACETYLSALICYLIC ACID [Suspect]
     Active Substance: ASPIRIN
     Indication: STENT PLACEMENT
  5. ACETYLSALICYLIC ACID [Suspect]
     Active Substance: ASPIRIN
     Indication: ACUTE MYOCARDIAL INFARCTION
  6. TICAGRELOR. [Interacting]
     Active Substance: TICAGRELOR
     Indication: ACUTE MYOCARDIAL INFARCTION
  7. PERAZINE [Interacting]
     Active Substance: PERAZINE
     Dosage: 200 MG, QD
  8. ZOFENOPRIL [Concomitant]
     Active Substance: ZOFENOPRIL
     Indication: ACUTE CORONARY SYNDROME
  9. EPLERENONE. [Concomitant]
     Active Substance: EPLERENONE
     Indication: ACUTE MYOCARDIAL INFARCTION
     Dosage: 50 MG, QD
  10. ZOFENOPRIL [Concomitant]
     Active Substance: ZOFENOPRIL
     Indication: STENT PLACEMENT
     Dosage: 8 MG, QD
  11. EPLERENONE. [Concomitant]
     Active Substance: EPLERENONE
     Indication: STENT PLACEMENT
  12. TICAGRELOR. [Interacting]
     Active Substance: TICAGRELOR
     Indication: STENT PLACEMENT
  13. ACETYLSALICYLIC ACID [Suspect]
     Active Substance: ASPIRIN
     Indication: ACUTE CORONARY SYNDROME
     Dosage: 100 MG, QD
  14. TICAGRELOR. [Interacting]
     Active Substance: TICAGRELOR
     Indication: ACUTE CORONARY SYNDROME
     Dosage: 180 MG, QD
     Route: 048
  15. ZOLPIDEM TARTRATE. [Suspect]
     Active Substance: ZOLPIDEM TARTRATE
     Indication: INITIAL INSOMNIA
     Dosage: 10 MG, QD (AT BEDTIME 10 MG DAILY)
  16. HYDROXYZINE [Interacting]
     Active Substance: HYDROXYZINE HYDROCHLORIDE
     Dosage: 50 MG, QD
  17. EPLERENONE. [Concomitant]
     Active Substance: EPLERENONE
     Indication: ACUTE CORONARY SYNDROME

REACTIONS (12)
  - Angina pectoris [Unknown]
  - Hypoaesthesia [Unknown]
  - Overdose [Unknown]
  - Tachyphylaxis [Unknown]
  - Drug interaction [Unknown]
  - Vascular stent thrombosis [Unknown]
  - Sleep disorder [Unknown]
  - Attention deficit/hyperactivity disorder [Unknown]
  - Memory impairment [Unknown]
  - Intentional product misuse [Unknown]
  - Drug abuse [Unknown]
  - Disturbance in attention [Unknown]
